FAERS Safety Report 7439699-4 (Version None)
Quarter: 2011Q2

REPORT INFORMATION
  Report Type: 
  Country: None (occurrence: None)
  Receive Date: 20110427
  Receipt Date: 20110414
  Transmission Date: 20111010
  Serious: Yes (Other)
  Sender: FDA-Public Use
  Company Number: PHHY2011US32541

PATIENT
  Age: 66 Year
  Sex: Female

DRUGS (1)
  1. RECLAST [Suspect]
     Dosage: 5 MG
     Route: 042
     Dates: start: 20110408

REACTIONS (7)
  - ASTHENIA [None]
  - PAIN [None]
  - HALLUCINATION [None]
  - CONSCIOUSNESS FLUCTUATING [None]
  - BLOOD POTASSIUM DECREASED [None]
  - NERVOUS SYSTEM DISORDER [None]
  - BLOOD CALCIUM DECREASED [None]
